FAERS Safety Report 21614778 (Version 1)
Quarter: 2022Q4

REPORT INFORMATION
  Report Type: Spontaneous
  Country: PL (occurrence: PL)
  Receive Date: 20221118
  Receipt Date: 20221118
  Transmission Date: 20230113
  Serious: Yes (Other)
  Sender: FDA-Public Use
  Company Number: PL-PFIZER INC-PV202200100190

PATIENT
  Age: 63 Year
  Sex: Female

DRUGS (7)
  1. BEVACIZUMAB [Suspect]
     Active Substance: BEVACIZUMAB
     Indication: Ovarian cancer stage IV
     Dosage: 7.5 MG/KG, EVERY 3 WEEKS
     Route: 042
  2. BEVACIZUMAB [Suspect]
     Active Substance: BEVACIZUMAB
     Dosage: MAINTENANCE THERAPY
  3. PACLITAXEL [Suspect]
     Active Substance: PACLITAXEL
     Indication: Ovarian cancer stage IV
     Dosage: 175 MG/M2
  4. OLAPARIB [Suspect]
     Active Substance: OLAPARIB
     Dosage: 300 MG, 2X/DAY
  5. OLAPARIB [Suspect]
     Active Substance: OLAPARIB
     Dosage: 250 MG, 2X/DAY
  6. OLAPARIB [Suspect]
     Active Substance: OLAPARIB
     Dosage: 200 MG, 2X/DAY
  7. CARBOPLATIN [Concomitant]
     Active Substance: CARBOPLATIN
     Indication: Ovarian cancer stage IV
     Dosage: AUC 6.0

REACTIONS (2)
  - Anaemia [Unknown]
  - Blood pressure increased [Unknown]
